FAERS Safety Report 4807979-4 (Version None)
Quarter: 2005Q4

REPORT INFORMATION
  Report Type: 
  Country: None (occurrence: None)
  Receive Date: 20051020
  Receipt Date: 20051012
  Transmission Date: 20060501
  Serious: Yes (Other)
  Sender: FDA-Public Use
  Company Number: 200510454BYL

PATIENT
  Age: 72 Year
  Sex: Female
  Weight: 44 kg

DRUGS (5)
  1. GLUCOBAY [Suspect]
     Indication: DIABETES MELLITUS
     Dosage: 100 MG, TID, ORAL
     Route: 048
     Dates: start: 20050714, end: 20050811
  2. EUGLUCON [Concomitant]
  3. CYANOCOBALAMIN [Concomitant]
  4. LIPITOR [Concomitant]
  5. MEDET [Concomitant]

REACTIONS (1)
  - NEUTROPENIA [None]
